FAERS Safety Report 7679153-8 (Version None)
Quarter: 2011Q3

REPORT INFORMATION
  Report Type: 
  Country: None (occurrence: None)
  Receive Date: 20110812
  Receipt Date: 20110802
  Transmission Date: 20111222
  Serious: Yes (Death, Hospitalization)
  Sender: FDA-Public Use
  Company Number: US-ELI_LILLY_AND_COMPANY-US201108002073

PATIENT
  Sex: Female

DRUGS (10)
  1. LEVAQUIN [Concomitant]
     Dosage: 250 MG, UNKNOWN
  2. ALLOPURINOL [Concomitant]
     Dosage: 100 MG, UNK
  3. PREDNISONE [Concomitant]
     Dosage: 10 MG, UNKNOWN
  4. XOPENEX [Concomitant]
     Dosage: 0.63 MG, UNKNOWN
  5. SPIRIVA [Concomitant]
     Dosage: 18 UG, UNKNOWN
  6. FUROSEMIDE [Concomitant]
     Dosage: 20 MG, UNK
  7. AMOXICILINA + ACIDO CLAVULANICO    /02043401/ [Concomitant]
     Dosage: 125 MG, UNKNOWN
  8. ADVAIR DISKUS 100/50 [Concomitant]
     Dosage: 1 DF, UNKNOWN
  9. LISINOPRIL [Concomitant]
     Dosage: 5 MG, UNK
  10. FORTEO [Suspect]
     Indication: OSTEOPOROSIS
     Dosage: 20 UG, QD
     Dates: end: 20110801

REACTIONS (4)
  - DYSPNOEA [None]
  - DEATH [None]
  - PNEUMONIA [None]
  - PYREXIA [None]
